FAERS Safety Report 7658598-6 (Version None)
Quarter: 2011Q3

REPORT INFORMATION
  Report Type: 
  Country: None (occurrence: None)
  Receive Date: 20110805
  Receipt Date: 20110803
  Transmission Date: 20111222
  Serious: Yes (Death, Life-Threatening)
  Sender: FDA-Public Use
  Company Number: US-B.I. PHARMACEUTICALS,INC./RIDGEFIELD-2011-BP-16054BP

PATIENT
  Age: 68 Year
  Sex: Male
  Weight: 77 kg

DRUGS (18)
  1. ASPIRIN [Concomitant]
     Route: 065
  2. CELEXA [Concomitant]
     Route: 065
  3. LASIX [Concomitant]
     Route: 065
  4. NITROGLYCERIN [Concomitant]
     Route: 065
  5. DILTIAZEM [Concomitant]
     Route: 065
  6. OXYCODONE HCL [Concomitant]
     Route: 065
  7. POTASSIUM CHLORIDE [Concomitant]
     Route: 065
  8. GUAIFENESIN [Concomitant]
     Route: 065
  9. LACTULOSE [Concomitant]
     Route: 065
  10. M.V.I. [Concomitant]
     Route: 065
  11. OS-CAL [Concomitant]
     Route: 065
  12. VANCOMYCIN [Concomitant]
     Route: 065
  13. PRADAXA [Suspect]
     Indication: ATRIAL FIBRILLATION
     Dates: end: 20110502
  14. INVEGA [Concomitant]
     Route: 065
  15. ALBUTEROL SULFATE AUTOHALER [Concomitant]
     Route: 065
  16. IPRATROPIUM BROMIDE [Concomitant]
     Route: 065
  17. DIGOXIN [Concomitant]
     Route: 065
  18. ZOSYN [Concomitant]
     Route: 065

REACTIONS (2)
  - ROAD TRAFFIC ACCIDENT [None]
  - TRAUMATIC HAEMORRHAGE [None]
